FAERS Safety Report 7433082-3 (Version None)
Quarter: 2011Q2

REPORT INFORMATION
  Report Type: 
  Country: None (occurrence: None)
  Receive Date: 20110415
  Receipt Date: 20110401
  Transmission Date: 20111010
  Serious: Yes (Hospitalization)
  Sender: FDA-Public Use
  Company Number: 8042970

PATIENT
  Sex: Male
  Weight: 89.5 kg

DRUGS (10)
  1. TYLENOL EXTRA STRENGTH [Concomitant]
  2. METHOTREXATE [Concomitant]
  3. AMITRIPTYLINE [Concomitant]
  4. ALBUTEROL [Concomitant]
  5. COMBIVENT [Concomitant]
  6. PREDNISONE [Concomitant]
  7. VOLTAREN [Concomitant]
  8. CIMZIA [Suspect]
     Indication: RHEUMATOID ARTHRITIS
     Dosage: 400 MG 1X/2 WEEKS, NR OF DOSES: 8 SUBCUTANEOUS, 200 MG, NR OF DOSES: 89 SUBCUTANEOUS
     Route: 058
     Dates: start: 20050727
  9. CIMZIA [Suspect]
     Indication: RHEUMATOID ARTHRITIS
     Dosage: 400 MG 1X/2 WEEKS, NR OF DOSES: 8 SUBCUTANEOUS, 200 MG, NR OF DOSES: 89 SUBCUTANEOUS
     Route: 058
     Dates: start: 20050405, end: 20050714
  10. MAXZIDE [Concomitant]

REACTIONS (2)
  - SYNCOPE [None]
  - CELLULITIS [None]
